FAERS Safety Report 6623402-1 (Version None)
Quarter: 2010Q1

REPORT INFORMATION
  Report Type: 
  Country: None (occurrence: None)
  Receive Date: 20100310
  Receipt Date: 20091204
  Transmission Date: 20100710
  Serious: No
  Sender: FDA-Public Use
  Company Number: US-BIOGENIDEC-2009BI039538

PATIENT
  Sex: Female

DRUGS (2)
  1. AVONEX [Suspect]
     Indication: MULTIPLE SCLEROSIS
     Route: 030
     Dates: start: 19990101
  2. AVONEX [Suspect]
     Route: 030

REACTIONS (6)
  - ALOPECIA [None]
  - FATIGUE [None]
  - IMMUNODEFICIENCY [None]
  - PLATELET DISORDER [None]
  - RASH PAPULAR [None]
  - STRESS [None]
